FAERS Safety Report 13769693 (Version 1)
Quarter: 2017Q3

REPORT INFORMATION
  Report Type: Spontaneous
  Country: IE (occurrence: IE)
  Receive Date: 20170719
  Receipt Date: 20170719
  Transmission Date: 20171127
  Serious: Yes (Hospitalization)
  Sender: FDA-Public Use
  Company Number: IE-PFIZER INC-2900002

PATIENT
  Age: 70 Year
  Sex: Male

DRUGS (2)
  1. VANCOMYCIN HCL [Suspect]
     Active Substance: VANCOMYCIN HYDROCHLORIDE
     Dosage: 1250 MG, FREQ: 2 DAY; INTERVAL: 1
     Route: 041
     Dates: start: 20150522
  2. SODIUM CHLORIDE. [Concomitant]
     Active Substance: SODIUM CHLORIDE
     Indication: PRODUCT USED FOR UNKNOWN INDICATION
     Dosage: 125 ML, UNK
     Route: 041
     Dates: start: 20150522

REACTIONS (3)
  - Platelet count decreased [Unknown]
  - Rash [Unknown]
  - Liver function test increased [Unknown]

NARRATIVE: CASE EVENT DATE: 20150522
